FAERS Safety Report 17766623 (Version 1)
Quarter: 2020Q2

REPORT INFORMATION
  Report Type: Spontaneous
  Country: US (occurrence: US)
  Receive Date: 20200511
  Receipt Date: 20200511
  Transmission Date: 20200714
  Serious: Yes (Hospitalization)
  Sender: FDA-Public Use
  Company Number: None

PATIENT
  Age: 36 Year
  Sex: Female

DRUGS (7)
  1. SPIRONOLACLONE [Concomitant]
  2. BENLYSTA [Suspect]
     Active Substance: BELIMUMAB
     Route: 058
  3. PAMELOR [Concomitant]
     Active Substance: NORTRIPTYLINE HYDROCHLORIDE
  4. FLEXERIL [Concomitant]
     Active Substance: CYCLOBENZAPRINE HYDROCHLORIDE
  5. PLAQUENIL [Concomitant]
     Active Substance: HYDROXYCHLOROQUINE SULFATE
  6. IMURAN [Concomitant]
     Active Substance: AZATHIOPRINE
  7. LYRICA [Concomitant]
     Active Substance: PREGABALIN

REACTIONS (2)
  - COVID-19 [None]
  - Pleurisy [None]
